FAERS Safety Report 6155082-6 (Version None)
Quarter: 2009Q2

REPORT INFORMATION
  Report Type: 
  Country: None (occurrence: None)
  Receive Date: 20090410
  Receipt Date: 20090325
  Transmission Date: 20091009
  Serious: Yes (Death, Life-Threatening)
  Sender: FDA-Public Use
  Company Number: 8044462

PATIENT
  Age: 69 Year
  Sex: Male

DRUGS (5)
  1. PREDNISOLONE [Suspect]
     Indication: INTERSTITIAL LUNG DISEASE
     Dosage: 60 MG D
  2. IDARUBICIN HCL [Suspect]
     Indication: ACUTE LEUKAEMIA
  3. CYTARABINE [Suspect]
     Indication: ACUTE LEUKAEMIA
  4. MEROPENEM [Suspect]
     Indication: NEUTROPHIL COUNT DECREASED
     Dosage: 2 G D
  5. MICAFUNGIN [Suspect]
     Indication: NEUTROPHIL COUNT DECREASED
     Dosage: 150 MG D

REACTIONS (9)
  - ACUTE MYELOID LEUKAEMIA [None]
  - BRONCHOPULMONARY ASPERGILLOSIS [None]
  - CHEST PAIN [None]
  - GASTRIC HAEMORRHAGE [None]
  - GASTRITIS EROSIVE [None]
  - PNEUMONIA STAPHYLOCOCCAL [None]
  - RESPIRATORY FAILURE [None]
  - SHOCK [None]
  - ZYGOMYCOSIS [None]
